FAERS Safety Report 9652374 (Version 1)
Quarter: 2013Q4

REPORT INFORMATION
  Report Type: Spontaneous
  Country: US (occurrence: US)
  Receive Date: 20131029
  Receipt Date: 20131029
  Transmission Date: 20140711
  Serious: No
  Sender: FDA-Public Use
  Company Number: US-BIOGENIDEC-2013BI076011

PATIENT
  Sex: Male

DRUGS (4)
  1. TECFIDERA [Suspect]
     Indication: MULTIPLE SCLEROSIS
     Route: 048
     Dates: start: 20130628
  2. LYRICA [Concomitant]
  3. TIZANIDINE HCL [Concomitant]
  4. TAMSULOSIN HCL [Concomitant]

REACTIONS (1)
  - Gait disturbance [Unknown]
